FAERS Safety Report 8909283 (Version 1)
Quarter: 2012Q4

REPORT INFORMATION
  Report Type: Spontaneous
  Country: US (occurrence: None)
  Receive Date: 20121107
  Receipt Date: 20121107
  Transmission Date: 20130627
  Serious: Yes (Hospitalization, Other)
  Sender: FDA-Public Use
  Company Number: AUR-APL-2012-04565

PATIENT
  Age: 20 Year
  Sex: Male

DRUGS (4)
  1. LEVETIRACETAM [Suspect]
     Indication: DRUG USE FOR UNKNOWN INDICATION
  2. CITALOPRAM (CITALOPRAM) [Suspect]
     Indication: DRUG USE FOR UNKNOWN INDICATION
  3. DOXEPIN [Suspect]
     Indication: DRUG USE FOR UNKNOWN INDICATION
     Dosage: more than 3 g
  4. LIPID EMULSION [Suspect]
     Indication: DRUG USE FOR UNKNOWN INDICATION
     Route: 042

REACTIONS (15)
  - Overdose [None]
  - Toxicity to various agents [None]
  - Unresponsive to stimuli [None]
  - Pancreatitis [None]
  - Heart rate increased [None]
  - Blood pressure decreased [None]
  - Grand mal convulsion [None]
  - Electrocardiogram QRS complex prolonged [None]
  - Bradycardia [None]
  - Cardiac arrest [None]
  - Blood pH decreased [None]
  - Carbon dioxide decreased [None]
  - Blood lactic acid increased [None]
  - Blood bilirubin increased [None]
  - Hypertriglyceridaemia [None]
